FAERS Safety Report 12683793 (Version 1)
Quarter: 2016Q3

REPORT INFORMATION
  Report Type: Spontaneous
  Country: US (occurrence: None)
  Receive Date: 20160824
  Receipt Date: 20160824
  Transmission Date: 20161109
  Serious: Yes (Hospitalization)
  Sender: FDA-Public Use
  Company Number: None

PATIENT
  Age: 63 Year
  Sex: Female
  Weight: 33.11 kg

DRUGS (1)
  1. RUXOLITINIB [Suspect]
     Active Substance: RUXOLITINIB
     Indication: CHRONIC MYELOID LEUKAEMIA
     Route: 048
     Dates: start: 20160812

REACTIONS (4)
  - Leukocytosis [None]
  - Blood alkaline phosphatase increased [None]
  - Blast cells present [None]
  - Aspartate aminotransferase increased [None]

NARRATIVE: CASE EVENT DATE: 20160819
